FAERS Safety Report 12695078 (Version 1)
Quarter: 2016Q3

REPORT INFORMATION
  Report Type: Spontaneous
  Country: IR (occurrence: IR)
  Receive Date: 20160829
  Receipt Date: 20160829
  Transmission Date: 20161109
  Serious: Yes (Other)
  Sender: FDA-Public Use
  Company Number: IR-ELI_LILLY_AND_COMPANY-IR201608012088

PATIENT
  Age: 54 Year
  Sex: Female

DRUGS (3)
  1. CISPLATIN. [Suspect]
     Active Substance: CISPLATIN
     Indication: BILE DUCT CANCER
     Dosage: 60 MG/M2, CYCLICAL
     Route: 042
  2. 5-FU                               /00098801/ [Suspect]
     Active Substance: FLUOROURACIL
     Indication: BILE DUCT CANCER
     Dosage: 600 MG/M2, CYCLICAL
     Route: 042
  3. GEMCITABINE HYDROCHLORIDE. [Suspect]
     Active Substance: GEMCITABINE HYDROCHLORIDE
     Indication: BILE DUCT CANCER
     Dosage: 1.250 MG/M2, CYCLICAL
     Route: 042

REACTIONS (2)
  - Inappropriate schedule of drug administration [Recovered/Resolved]
  - Stevens-Johnson syndrome [Recovered/Resolved]
